FAERS Safety Report 16814258 (Version 1)
Quarter: 2019Q3

REPORT INFORMATION
  Report Type: Spontaneous
  Country: US (occurrence: US)
  Receive Date: 20190917
  Receipt Date: 20190917
  Transmission Date: 20191005
  Serious: Yes (Other)
  Sender: FDA-Public Use
  Company Number: US-ALLERGAN-1901634US

PATIENT
  Sex: Female

DRUGS (1)
  1. LINZESS [Suspect]
     Active Substance: LINACLOTIDE
     Indication: DIARRHOEA
     Dosage: 145 ?G, UNK
     Route: 065

REACTIONS (3)
  - Diarrhoea [Unknown]
  - Haematochezia [Unknown]
  - Off label use [Unknown]
